FAERS Safety Report 8261815-5 (Version None)
Quarter: 2012Q2

REPORT INFORMATION
  Report Type: 
  Country: None (occurrence: None)
  Receive Date: 20120405
  Receipt Date: 20120327
  Transmission Date: 20120825
  Serious: Yes (Other)
  Sender: FDA-Public Use
  Company Number: CH-BRISTOL-MYERS SQUIBB COMPANY-16481152

PATIENT
  Age: 26 Year
  Sex: Female

DRUGS (5)
  1. ABILIFY [Suspect]
     Route: 048
     Dates: end: 20110217
  2. FOLIC ACID [Concomitant]
     Dosage: POSOLOGIE UNIT
     Route: 048
  3. METHADONE HCL [Suspect]
     Route: 048
     Dates: start: 20100101
  4. HALDOL [Suspect]
     Route: 048
     Dates: start: 20100101
  5. DEPAKENE [Suspect]
     Dosage: DOSE DECREASED FROM 08-FEB-2011
     Route: 048
     Dates: end: 20110218

REACTIONS (4)
  - PREGNANCY [None]
  - SHOULDER DYSTOCIA [None]
  - NORMAL NEWBORN [None]
  - PERINEAL LACERATION [None]
